FAERS Safety Report 4361067-2 (Version None)
Quarter: 2004Q2

REPORT INFORMATION
  Report Type: 
  Country: None (occurrence: None)
  Receive Date: 20040517
  Receipt Date: 20040504
  Transmission Date: 20050107
  Serious: Yes (Life-Threatening, Hospitalization)
  Sender: FDA-Public Use
  Company Number: TR-AMGEN-US075768

PATIENT
  Sex: Female

DRUGS (4)
  1. ENBREL [Suspect]
     Indication: RHEUMATOID ARTHRITIS
     Dosage: 25 MG, 2 IN 1 WEEKS, SC
     Route: 058
     Dates: start: 20040315, end: 20040407
  2. METHOTREXATE [Concomitant]
  3. METHYLPREDNISOLONE [Concomitant]
  4. ROFECOXIB [Concomitant]

REACTIONS (2)
  - DIVERTICULAR PERFORATION [None]
  - DIVERTICULITIS [None]
